FAERS Safety Report 20249034 (Version 2)
Quarter: 2022Q1

REPORT INFORMATION
  Report Type: Spontaneous
  Country: NL (occurrence: NL)
  Receive Date: 20211229
  Receipt Date: 20220126
  Transmission Date: 20220423
  Serious: Yes (Life-Threatening, Hospitalization, Other)
  Sender: FDA-Public Use
  Company Number: NL-NOVARTISPH-NVSC2021NL298658

PATIENT
  Age: 74 Year
  Sex: Male

DRUGS (5)
  1. RITUXIMAB [Suspect]
     Active Substance: RITUXIMAB
     Indication: B-cell small lymphocytic lymphoma
     Dosage: UNK UNK, UNKNOWN (EIGHT COURSES OF R-CVP REGIMEN)
     Route: 042
     Dates: end: 201708
  2. CYCLOPHOSPHAMIDE [Suspect]
     Active Substance: CYCLOPHOSPHAMIDE
     Indication: B-cell small lymphocytic lymphoma
     Dosage: UNK UNK, UNKNOWN (EIGHT COURSES OF R-CVP REGIMEN)
     Route: 065
     Dates: end: 201708
  3. PREDNISONE [Suspect]
     Active Substance: PREDNISONE
     Indication: B-cell small lymphocytic lymphoma
     Dosage: UNK UNK, UNKNOWN (EIGHT COURSES OF R-CVP REGIMEN)
     Route: 065
     Dates: end: 201708
  4. VALPROIC ACID [Suspect]
     Active Substance: VALPROIC ACID
     Indication: Epilepsy
     Dosage: UNK UNK, UNKNOWN
     Route: 065
  5. VINCRISTINE [Suspect]
     Active Substance: VINCRISTINE
     Indication: B-cell small lymphocytic lymphoma
     Dosage: UNK UNK, UNKNOWN (EIGHT COURSES OF R-CVP REGIMEN)
     Route: 065
     Dates: end: 201708

REACTIONS (6)
  - Febrile neutropenia [Recovered/Resolved]
  - Post-acute COVID-19 syndrome [Recovered/Resolved]
  - Pancytopenia [Recovered/Resolved]
  - Respiratory failure [Recovered/Resolved]
  - Normocytic anaemia [Unknown]
  - Thrombocytopenia [Unknown]
